FAERS Safety Report 5482185-1 (Version None)
Quarter: 2007Q4

REPORT INFORMATION
  Report Type: 
  Country: None (occurrence: None)
  Receive Date: 20071011
  Receipt Date: 20071001
  Transmission Date: 20080405
  Serious: Yes (Hospitalization, Other)
  Sender: FDA-Public Use
  Company Number: US-WYE-H00475707

PATIENT
  Age: 51 Year
  Sex: Male

DRUGS (3)
  1. TORISEL [Suspect]
     Indication: METASTATIC RENAL CELL CARCINOMA
     Dosage: NOT SPECIFIED
     Route: 042
     Dates: start: 20070901
  2. IRON [Concomitant]
  3. TYLENOL (CAPLET) [Concomitant]

REACTIONS (5)
  - BLOOD CREATININE INCREASED [None]
  - CHILLS [None]
  - ENCEPHALOPATHY [None]
  - NAUSEA [None]
  - PYREXIA [None]
